FAERS Safety Report 5275450-4 (Version None)
Quarter: 2007Q1

REPORT INFORMATION
  Report Type: 
  Country: None (occurrence: None)
  Receive Date: 20061213
  Receipt Date: 20040721
  Transmission Date: 20070707
  Serious: No
  Sender: FDA-Public Use
  Company Number: 2004UW09786

PATIENT
  Age: 51 Year
  Sex: Male

DRUGS (3)
  1. SEROQUEL [Suspect]
     Indication: BIPOLAR DISORDER
     Dosage: 300 MG DAILY PO
     Route: 048
     Dates: start: 20020103, end: 20030125
  2. DEPAKOTE [Concomitant]
  3. TOPAMAX [Concomitant]

REACTIONS (1)
  - DIABETES MELLITUS [None]
